FAERS Safety Report 21844480 (Version 3)
Quarter: 2025Q2

REPORT INFORMATION
  Report Type: Report from Study
  Country: US (occurrence: US)
  Receive Date: 20230110
  Receipt Date: 20250425
  Transmission Date: 20250717
  Serious: Yes (Other)
  Sender: TAKEDA
  Company Number: US-TAKEDA-2023TUS002546

PATIENT
  Age: 48 Year
  Sex: Male

DRUGS (3)
  1. VONICOG ALFA [Suspect]
     Active Substance: VONICOG ALFA
     Indication: Haemorrhage
  2. VONICOG ALFA [Suspect]
     Active Substance: VONICOG ALFA
  3. VONICOG ALFA [Suspect]
     Active Substance: VONICOG ALFA

REACTIONS (3)
  - Epistaxis [Unknown]
  - Haemorrhage [Unknown]
  - COVID-19 [Unknown]

NARRATIVE: CASE EVENT DATE: 20230104
